FAERS Safety Report 8974269 (Version 1)
Quarter: 2012Q4

REPORT INFORMATION
  Report Type: Spontaneous
  Country: US (occurrence: None)
  Receive Date: 20121217
  Receipt Date: 20121217
  Transmission Date: 20130627
  Serious: Yes (Other)
  Sender: FDA-Public Use
  Company Number: None

PATIENT
  Age: 65 Year
  Sex: Female
  Weight: 83.01 kg

DRUGS (1)
  1. CHANTIX [Suspect]

REACTIONS (6)
  - Flatulence [None]
  - Diarrhoea [None]
  - Dehydration [None]
  - Vomiting [None]
  - Cold sweat [None]
  - Nervousness [None]
